FAERS Safety Report 10049151 (Version 3)
Quarter: 2014Q2

REPORT INFORMATION
  Report Type: Spontaneous
  Country: IT (occurrence: IT)
  Receive Date: 20140401
  Receipt Date: 20140620
  Transmission Date: 20141212
  Serious: Yes (Life-Threatening)
  Sender: FDA-Public Use
  Company Number: IT-009507513-1403ITA013171

PATIENT
  Age: 59 Year
  Sex: Male

DRUGS (11)
  1. RIBAVIRIN [Suspect]
     Indication: HEPATITIS C
     Dosage: 400 MG, UNK
     Route: 048
     Dates: start: 20131015, end: 20140213
  2. RIBAVIRIN [Suspect]
     Indication: HEPATITIS C VIRUS TEST POSITIVE
  3. RIBAVIRIN [Suspect]
     Indication: HEPATIC CIRRHOSIS
  4. PEGINTERFERON ALFA-2A [Suspect]
     Indication: HEPATITIS C
     Dosage: 180MICROGRAM, WEEKLY
     Dates: start: 20131015, end: 20140213
  5. PEGINTERFERON ALFA-2A [Suspect]
     Indication: HEPATITIS C VIRUS TEST POSITIVE
  6. PEGINTERFERON ALFA-2A [Suspect]
     Indication: HEPATIC CIRRHOSIS
  7. TELAPREVIR [Suspect]
     Indication: HEPATITIS C
     Dosage: 2250 MG, UNK
     Route: 048
     Dates: start: 20131220, end: 20140212
  8. TELAPREVIR [Suspect]
     Indication: HEPATITIS C VIRUS TEST POSITIVE
  9. TELAPREVIR [Suspect]
     Indication: HEPATIC CIRRHOSIS
  10. METFORMIN [Concomitant]
     Dosage: 1700MG
     Route: 048
  11. ASPIRIN [Concomitant]
     Dosage: 100MG
     Route: 048

REACTIONS (2)
  - Eczema [Recovering/Resolving]
  - Rash generalised [Recovering/Resolving]
